FAERS Safety Report 12898833 (Version 1)
Quarter: 2016Q4

REPORT INFORMATION
  Report Type: Spontaneous
  Country: MW (occurrence: MW)
  Receive Date: 20161101
  Receipt Date: 20161101
  Transmission Date: 20170207
  Serious: Yes (Hospitalization)
  Sender: FDA-Public Use
  Company Number: MW-STRIDES ARCOLAB LIMITED-2016SP016667

PATIENT

DRUGS (4)
  1. SULFAMETHOXAZOLE AND TRIMETHOPRIM [Suspect]
     Active Substance: SULFAMETHOXAZOLE\TRIMETHOPRIM
     Indication: TUBERCULOSIS
     Dosage: UNK
     Dates: start: 201208
  2. STAVUDINE. [Concomitant]
     Active Substance: STAVUDINE
     Indication: HIV INFECTION
     Dosage: UNK
  3. LAMIVUDINE. [Concomitant]
     Active Substance: LAMIVUDINE
     Indication: HIV INFECTION
     Dosage: UNK
  4. NEVIRAPINE. [Suspect]
     Active Substance: NEVIRAPINE
     Indication: HIV INFECTION
     Dosage: UNK
     Dates: start: 201208

REACTIONS (12)
  - Symblepharon [Unknown]
  - Stevens-Johnson syndrome [Unknown]
  - Eye inflammation [Unknown]
  - Toxic epidermal necrolysis [Unknown]
  - Visual acuity reduced [Unknown]
  - Endophthalmitis [Not Recovered/Not Resolved]
  - Blindness [Not Recovered/Not Resolved]
  - Foreign body sensation in eyes [Unknown]
  - Conjunctivitis [Not Recovered/Not Resolved]
  - Eyelid oedema [Not Recovered/Not Resolved]
  - Corneal thinning [Unknown]
  - Conjunctival oedema [Not Recovered/Not Resolved]
